FAERS Safety Report 25085117 (Version 1)
Quarter: 2025Q1

REPORT INFORMATION
  Report Type: Spontaneous
  Country: JP (occurrence: JP)
  Receive Date: 20250317
  Receipt Date: 20250317
  Transmission Date: 20250409
  Serious: Yes (Other)
  Sender: FERRING
  Company Number: JP-FERRINGPH-2025FE01194

PATIENT

DRUGS (2)
  1. PICOPREP [Suspect]
     Active Substance: ANHYDROUS CITRIC ACID\MAGNESIUM OXIDE\SODIUM PICOSULFATE
     Indication: Bowel preparation
     Dosage: 2 DOSAGE FORM, DAILY (2 PACKET QD)
     Route: 048
     Dates: start: 20250304, end: 20250304
  2. SENNOSIDES A AND B [Concomitant]
     Active Substance: SENNOSIDES A AND B
     Indication: Bowel preparation
     Route: 048
     Dates: start: 20250303, end: 20250303

REACTIONS (2)
  - Colitis ischaemic [Recovered/Resolved]
  - Product use issue [Recovered/Resolved]

NARRATIVE: CASE EVENT DATE: 20250304
